FAERS Safety Report 11226037 (Version 2)
Quarter: 2015Q3

REPORT INFORMATION
  Report Type: Spontaneous
  Country: US (occurrence: US)
  Receive Date: 20150629
  Receipt Date: 20150702
  Transmission Date: 20151125
  Serious: No
  Sender: FDA-Public Use
  Company Number: US-PFIZER INC-2015216028

PATIENT
  Age: 49 Year
  Sex: Female
  Weight: 67 kg

DRUGS (2)
  1. PRISTIQ EXTENDED RELEASE [Suspect]
     Active Substance: DESVENLAFAXINE SUCCINATE
     Indication: DEPRESSION
     Dosage: UNK
     Dates: end: 2014
  2. FETZIMA [Suspect]
     Active Substance: LEVOMILNACIPRAN HYDROCHLORIDE
     Indication: DEPRESSION
     Dosage: 40 MG, 1X/DAY
     Dates: start: 2014, end: 2015

REACTIONS (9)
  - Anxiety [Not Recovered/Not Resolved]
  - Irritability [Not Recovered/Not Resolved]
  - Bruxism [Not Recovered/Not Resolved]
  - Tongue disorder [Not Recovered/Not Resolved]
  - Drug ineffective [Not Recovered/Not Resolved]
  - Fatigue [Not Recovered/Not Resolved]
  - Drug withdrawal syndrome [Not Recovered/Not Resolved]
  - Abnormal behaviour [Not Recovered/Not Resolved]
  - Respiratory rate increased [Not Recovered/Not Resolved]

NARRATIVE: CASE EVENT DATE: 2014
